FAERS Safety Report 9808739 (Version 3)
Quarter: 2014Q2

REPORT INFORMATION
  Report Type: Spontaneous
  Country: US (occurrence: US)
  Receive Date: 20140110
  Receipt Date: 20140407
  Transmission Date: 20141212
  Serious: No
  Sender: FDA-Public Use
  Company Number: US-GILEAD-2014-0091585

PATIENT
  Sex: Female

DRUGS (4)
  1. LETAIRIS [Suspect]
     Indication: PRODUCT USED FOR UNKNOWN INDICATION
     Dosage: 5 MG, QD
     Route: 065
     Dates: start: 20130531
  2. LETAIRIS [Suspect]
     Dosage: 10 MG, QD
     Route: 065
     Dates: start: 20130802
  3. TRACLEER                           /01587701/ [Concomitant]
  4. COUMADIN                           /00014802/ [Concomitant]

REACTIONS (2)
  - Dyspnoea [Not Recovered/Not Resolved]
  - Dyspnoea [Unknown]
